FAERS Safety Report 23605008 (Version 2)
Quarter: 2024Q1

REPORT INFORMATION
  Report Type: Report from Study
  Country: TH (occurrence: None)
  Receive Date: 20240307
  Receipt Date: 20240321
  Transmission Date: 20240409
  Serious: Yes (Hospitalization)
  Sender: FDA-Public Use
  Company Number: 2024A054597

PATIENT
  Age: 730 Month
  Sex: Male

DRUGS (1)
  1. LYNPARZA [Suspect]
     Active Substance: OLAPARIB
     Indication: Pancreatic carcinoma metastatic
     Dosage: 150 MG 2 TABLETS BID
     Route: 048
     Dates: start: 20240213, end: 202402

REACTIONS (13)
  - Pyrexia [Recovering/Resolving]
  - Syncope [Unknown]
  - Sepsis [Recovering/Resolving]
  - Infection [Unknown]
  - Mobility decreased [Unknown]
  - Hypophagia [Unknown]
  - Urine output decreased [Unknown]
  - Abdominal pain [Unknown]
  - Somnolence [Not Recovered/Not Resolved]
  - Fatigue [Recovering/Resolving]
  - Cough [Unknown]
  - Platelet count decreased [Recovering/Resolving]
  - Asthenia [Not Recovered/Not Resolved]

NARRATIVE: CASE EVENT DATE: 20240201
